FAERS Safety Report 25359249 (Version 2)
Quarter: 2025Q2

REPORT INFORMATION
  Report Type: Report from Study
  Country: ES (occurrence: ES)
  Receive Date: 20250526
  Receipt Date: 20250613
  Transmission Date: 20250716
  Serious: Yes (Death, Hospitalization, Other)
  Sender: ABBVIE
  Company Number: ES-ABBVIE-6297001

PATIENT
  Age: 12 Year
  Sex: Female

DRUGS (1)
  1. ADALIMUMAB [Suspect]
     Active Substance: ADALIMUMAB
     Indication: Crohn^s disease
     Route: 058
     Dates: start: 20180530

REACTIONS (3)
  - Pulmonary alveolar haemorrhage [Fatal]
  - Respiratory tract infection [Unknown]
  - Tuberculosis [Unknown]

NARRATIVE: CASE EVENT DATE: 20180101
